FAERS Safety Report 10155875 (Version 1)
Quarter: 2014Q2

REPORT INFORMATION
  Report Type: Spontaneous
  Country: GB (occurrence: GB)
  Receive Date: 20140506
  Receipt Date: 20140506
  Transmission Date: 20141212
  Serious: Yes (Disabling, Other)
  Sender: FDA-Public Use
  Company Number: GB-ACTAVIS-2014-08930

PATIENT
  Age: 75 Year
  Sex: Female
  Weight: 73 kg

DRUGS (5)
  1. PACLITAXEL (UNKNOWN) [Suspect]
     Indication: BREAST CANCER
     Dosage: 144 MG, 1/WEEK
     Route: 042
     Dates: start: 20130409, end: 20130603
  2. HERCEPTIN [Suspect]
     Indication: BREAST CANCER
     Dosage: 441 MG, 1/ THREE WEEKS
     Route: 042
     Dates: start: 20130409, end: 20131203
  3. HERCEPTIN [Suspect]
     Dosage: 600 MG, 1/ THREE WEEKS
     Route: 058
     Dates: start: 20131224, end: 20140114
  4. ADCAL                              /07357001/ [Concomitant]
     Indication: OSTEOPENIA
     Dosage: 2 DF, DAILY
     Route: 048
     Dates: start: 201306
  5. ANASTROZOLE [Concomitant]
     Indication: PRODUCT USED FOR UNKNOWN INDICATION
     Dosage: 1 MG, DAILY
     Route: 048
     Dates: start: 20130610

REACTIONS (1)
  - Neuropathy peripheral [Not Recovered/Not Resolved]
